FAERS Safety Report 16069999 (Version 1)
Quarter: 2019Q1

REPORT INFORMATION
  Report Type: Spontaneous
  Country: US (occurrence: US)
  Receive Date: 20190314
  Receipt Date: 20190314
  Transmission Date: 20190418
  Serious: Yes (Other)
  Sender: FDA-Public Use
  Company Number: US-LUPIN PHARMACEUTICALS INC.-2019-01379

PATIENT
  Age: 36 Year
  Sex: Female
  Weight: 67.12 kg

DRUGS (2)
  1. TRI-LO-MARZIA [Suspect]
     Active Substance: ETHINYL ESTRADIOL\NORGESTIMATE
     Indication: ORAL CONTRACEPTION
     Dosage: 0.18/0.025 MG, QD
     Route: 048
     Dates: start: 20190224, end: 20190228
  2. TRI-LO-MARZIA TABLETS 0.215 MG/0.025 MG [Suspect]
     Active Substance: ETHINYL ESTRADIOL\NORGESTIMATE
     Indication: ORAL CONTRACEPTION
     Dosage: 0.215/0.25 MG, QD
     Route: 048
     Dates: start: 20190224, end: 20190228

REACTIONS (2)
  - Depression [Recovered/Resolved]
  - Self-injurious ideation [Recovered/Resolved]

NARRATIVE: CASE EVENT DATE: 20190224
